FAERS Safety Report 24657666 (Version 2)
Quarter: 2024Q4

REPORT INFORMATION
  Report Type: Spontaneous
  Country: JP (occurrence: JP)
  Receive Date: 20241125
  Receipt Date: 20241212
  Transmission Date: 20250115
  Serious: Yes (Hospitalization, Other)
  Sender: GLAXOSMITHKLINE
  Company Number: JP-GSK-JP2024JPN144077

PATIENT

DRUGS (4)
  1. LAMICTAL [Suspect]
     Active Substance: LAMOTRIGINE
     Indication: Epilepsy
     Dosage: UNK
  2. CARBAMAZEPINE [Concomitant]
     Active Substance: CARBAMAZEPINE
     Indication: Epilepsy
     Dosage: UNK
  3. PERAMPANEL [Concomitant]
     Active Substance: PERAMPANEL
     Indication: Epilepsy
     Dosage: UNK
  4. CLOBAZAM [Concomitant]
     Active Substance: CLOBAZAM
     Indication: Epilepsy
     Dosage: UNK

REACTIONS (9)
  - Psychiatric symptom [Recovered/Resolved]
  - Focal dyscognitive seizures [Unknown]
  - Hallucination, auditory [Unknown]
  - Schizophrenia [Unknown]
  - Seizure [Unknown]
  - Feeling abnormal [Unknown]
  - Vomiting [Unknown]
  - Persecutory delusion [Unknown]
  - Psychotic disorder [Unknown]
